FAERS Safety Report 19670849 (Version 14)
Quarter: 2022Q3

REPORT INFORMATION
  Report Type: Report from Study
  Country: CN (occurrence: None)
  Receive Date: 20210806
  Receipt Date: 20220705
  Transmission Date: 20221026
  Serious: Yes (Hospitalization)
  Sender: FDA-Public Use
  Company Number: CN-ROCHE-2883200

PATIENT
  Age: 59 Year
  Sex: Male
  Weight: 54.4 kg

DRUGS (43)
  1. ATEZOLIZUMAB [Suspect]
     Active Substance: ATEZOLIZUMAB
     Indication: Oesophageal squamous cell carcinoma
     Dosage: MOST RECENT DOSE OF STUDY DRUG 1200 MG PRIOR TO SAE: 26/JUL/2021
     Route: 042
     Dates: start: 20210524
  2. PACLITAXEL [Suspect]
     Active Substance: PACLITAXEL
     Indication: Oesophageal squamous cell carcinoma
     Dosage: MOST RECENT DOSE (270 MG) OF STUDY DRUG PRIOR TO SAE: 26/JUL/2021
     Route: 042
     Dates: start: 20210524
  3. TIRAGOLUMAB [Suspect]
     Active Substance: TIRAGOLUMAB
     Indication: Oesophageal squamous cell carcinoma
     Dosage: MOST RECENT DOSE OF STUDY DRUG 600 MG PRIOR TO SAE: 26/JUL/2021
     Route: 042
     Dates: start: 20210524
  4. CISPLATIN [Suspect]
     Active Substance: CISPLATIN
     Indication: Oesophageal squamous cell carcinoma
     Dosage: MOST RECENT DOSE OF STUDY DRUG PRIOR TO SAE: 27/JUL/2021 (60-80 MG/M2 AS PER PROTOCOL)
     Route: 042
     Dates: start: 20210524
  5. DEXAMETHASONE [Concomitant]
     Active Substance: DEXAMETHASONE
     Indication: Vomiting
     Route: 042
     Dates: start: 20210705, end: 20210705
  6. DEXAMETHASONE [Concomitant]
     Active Substance: DEXAMETHASONE
     Indication: Prophylaxis of nausea and vomiting
     Route: 042
     Dates: start: 20210707, end: 20210707
  7. DEXAMETHASONE [Concomitant]
     Active Substance: DEXAMETHASONE
     Route: 042
     Dates: start: 20210906, end: 20210906
  8. DEXAMETHASONE [Concomitant]
     Active Substance: DEXAMETHASONE
     Route: 042
     Dates: start: 20210907, end: 20210907
  9. DEXAMETHASONE [Concomitant]
     Active Substance: DEXAMETHASONE
     Route: 042
     Dates: start: 20210706, end: 20210706
  10. DEXAMETHASONE [Concomitant]
     Active Substance: DEXAMETHASONE
     Route: 042
     Dates: start: 20210729, end: 20210729
  11. CIMETIDINE [Concomitant]
     Active Substance: CIMETIDINE
     Route: 042
     Dates: start: 20210706, end: 20210706
  12. CIMETIDINE [Concomitant]
     Active Substance: CIMETIDINE
     Dates: start: 20210726, end: 20210728
  13. CIMETIDINE [Concomitant]
     Active Substance: CIMETIDINE
     Dates: start: 20210906, end: 20210906
  14. CIMETIDINE [Concomitant]
     Active Substance: CIMETIDINE
     Dates: start: 20210729, end: 20210729
  15. DIPHENHYDRAMINE HYDROCHLORIDE [Concomitant]
     Active Substance: DIPHENHYDRAMINE HYDROCHLORIDE
     Dates: start: 20210705, end: 20210705
  16. DIPHENHYDRAMINE HYDROCHLORIDE [Concomitant]
     Active Substance: DIPHENHYDRAMINE HYDROCHLORIDE
     Dates: start: 20210726, end: 20210726
  17. DIPHENHYDRAMINE HYDROCHLORIDE [Concomitant]
     Active Substance: DIPHENHYDRAMINE HYDROCHLORIDE
     Dates: start: 20210906, end: 20210906
  18. PALONOSETRON HYDROCHLORIDE [Concomitant]
     Active Substance: PALONOSETRON HYDROCHLORIDE
     Indication: Prophylaxis
     Dates: start: 20210705, end: 20210705
  19. PALONOSETRON HYDROCHLORIDE [Concomitant]
     Active Substance: PALONOSETRON HYDROCHLORIDE
     Dates: start: 20210726, end: 20210726
  20. PALONOSETRON HYDROCHLORIDE [Concomitant]
     Active Substance: PALONOSETRON HYDROCHLORIDE
     Dates: start: 20210730, end: 20210730
  21. DEXAMETHASONE [Concomitant]
     Active Substance: DEXAMETHASONE
     Indication: Prophylaxis
     Route: 042
     Dates: start: 20210726, end: 20210726
  22. DEXAMETHASONE [Concomitant]
     Active Substance: DEXAMETHASONE
     Indication: Vomiting
     Route: 042
     Dates: start: 20210727, end: 20210728
  23. DEXAMETHASONE [Concomitant]
     Active Substance: DEXAMETHASONE
     Indication: Hypersensitivity
     Route: 042
     Dates: start: 20210706, end: 20210706
  24. DEXAMETHASONE [Concomitant]
     Active Substance: DEXAMETHASONE
     Route: 042
     Dates: start: 20210816, end: 20210816
  25. DEXAMETHASONE [Concomitant]
     Active Substance: DEXAMETHASONE
     Route: 042
     Dates: start: 20210908, end: 20210908
  26. DIPHENHYDRAMINE [Concomitant]
     Active Substance: DIPHENHYDRAMINE
     Indication: Prophylaxis
     Dates: start: 20210726, end: 20210726
  27. METOCLOPRAMIDE [Concomitant]
     Active Substance: METOCLOPRAMIDE
     Dates: start: 20210730, end: 20210730
  28. METOCLOPRAMIDE [Concomitant]
     Active Substance: METOCLOPRAMIDE
     Dates: start: 20210819, end: 20210819
  29. RECOMBINANT INTERLEUKIN-11 [Concomitant]
     Dates: start: 20210730, end: 20210730
  30. RECOMBINANT HUMAN GRANULOCYTE COLONY-STIMULATING FACTOR (REB) (UNK ING [Concomitant]
     Route: 042
     Dates: start: 20210701, end: 20210702
  31. RECOMBINANT HUMAN GRANULOCYTE COLONY-STIMULATING FACTOR (REB) (UNK ING [Concomitant]
     Dates: start: 20210803, end: 20210804
  32. VITAMIN B6 [Concomitant]
     Active Substance: PYRIDOXINE HYDROCHLORIDE
     Dates: start: 20210816, end: 20210818
  33. VITAMIN C [Concomitant]
     Active Substance: ASCORBIC ACID
     Indication: Vitamin supplementation
     Dates: start: 20210816, end: 20210817
  34. FOSAPITAN [Concomitant]
     Indication: Prophylaxis of nausea and vomiting
     Dates: start: 20210906, end: 20210906
  35. PALONOSETRON HYDROCHLORIDE [Concomitant]
     Active Substance: PALONOSETRON HYDROCHLORIDE
     Indication: Prophylaxis of nausea and vomiting
     Dates: start: 20210906, end: 20210906
  36. MANNITOL [Concomitant]
     Active Substance: MANNITOL
     Dates: start: 20210906, end: 20210906
  37. ESOMEPRAZOLE SODIUM [Concomitant]
     Active Substance: ESOMEPRAZOLE SODIUM
     Dates: start: 20210907, end: 20210908
  38. DEXTROSE\SODIUM CHLORIDE [Concomitant]
     Active Substance: DEXTROSE\SODIUM CHLORIDE
     Dates: start: 20210525
  39. LIDOCAINE [Concomitant]
     Active Substance: LIDOCAINE
     Indication: Anaesthesia
     Dates: start: 20210726, end: 20210726
  40. LACTULOSE [Concomitant]
     Active Substance: LACTULOSE
     Dates: start: 20210801, end: 20210801
  41. ESOMEPRAZOLE [Concomitant]
     Active Substance: ESOMEPRAZOLE
     Route: 042
     Dates: start: 20210730, end: 20210803
  42. VONOPRAZAN FUMARATE [Concomitant]
     Active Substance: VONOPRAZAN FUMARATE
     Dates: start: 20210804, end: 20210823
  43. DEXTROSE\SODIUM CHLORIDE [Concomitant]
     Active Substance: DEXTROSE\SODIUM CHLORIDE
     Dates: start: 20210907, end: 20210908

REACTIONS (1)
  - Anastomotic ulcer [Recovered/Resolved]

NARRATIVE: CASE EVENT DATE: 20210731
